FAERS Safety Report 8820367 (Version 1)
Quarter: 2012Q4

REPORT INFORMATION
  Report Type: 
  Country: PL (occurrence: PL)
  Receive Date: 20121002
  Receipt Date: 20121002
  Transmission Date: 20130627
  Serious: Yes (Other)
  Sender: FDA-Public Use
  Company Number: PL-JNJFOC-20120909345

PATIENT
  Age: 66 Year
  Sex: Female

DRUGS (5)
  1. INFLIXIMAB, RECOMBINANT [Suspect]
     Indication: PSORIASIS
     Route: 042
     Dates: start: 200806, end: 200905
  2. USTEKINUMAB [Suspect]
     Indication: PSORIASIS
     Route: 058
     Dates: start: 201203
  3. ADALIMUMAB [Suspect]
     Indication: PSORIASIS
     Route: 065
     Dates: start: 200906, end: 201001
  4. L-THYROXINE [Concomitant]
     Indication: HYPOTHYROIDISM
     Route: 065
  5. METHOTREXATE [Concomitant]
     Indication: PSORIASIS
     Route: 065

REACTIONS (2)
  - Connective tissue disorder [Unknown]
  - Drug effect decreased [Unknown]
